FAERS Safety Report 7609016-5 (Version None)
Quarter: 2011Q3

REPORT INFORMATION
  Report Type: 
  Country: None (occurrence: None)
  Receive Date: 20110714
  Receipt Date: 20110706
  Transmission Date: 20111222
  Serious: Yes (Death, Life-Threatening, Other)
  Sender: FDA-Public Use
  Company Number: JP-ROCHE-586790

PATIENT
  Sex: Male
  Weight: 45 kg

DRUGS (21)
  1. FLUOROURACIL [Suspect]
     Indication: COLON CANCER METASTATIC
     Dosage: ROUTE: INTRAVENOUS BOLUS
     Route: 042
     Dates: start: 20080723, end: 20080724
  2. DECADRON [Concomitant]
     Route: 050
     Dates: start: 20080903, end: 20080904
  3. OXALIPLATIN [Suspect]
     Indication: COLON CANCER METASTATIC
     Route: 041
     Dates: start: 20080723, end: 20080723
  4. ISOVORIN [Suspect]
     Route: 041
     Dates: start: 20080903, end: 20080903
  5. DECADRON [Concomitant]
     Route: 050
     Dates: start: 20080806, end: 20080807
  6. ISOVORIN [Suspect]
     Indication: COLON CANCER METASTATIC
     Route: 041
     Dates: start: 20080723, end: 20080724
  7. DECADRON [Concomitant]
     Dosage: ROUTE: INJECTABLE (NOT OTHERWISE SPECIFIED).
     Route: 050
     Dates: start: 20080723, end: 20080724
  8. KYTRIL [Concomitant]
     Route: 050
     Dates: start: 20080903, end: 20080904
  9. FLUOROURACIL [Suspect]
     Dosage: ROUTE: INTRAVENOUS DRIP
     Route: 042
     Dates: start: 20080723, end: 20080724
  10. FLUOROURACIL [Suspect]
     Dosage: ROUTE: INTRAVENOUS BOLUS
     Route: 042
     Dates: start: 20080903, end: 20080904
  11. ISOVORIN [Suspect]
     Route: 041
     Dates: start: 20080806, end: 20080807
  12. KYTRIL [Concomitant]
     Dosage: ROUTE: INJECTABLE (NOT OTHERWISE SPECIFIED).
     Route: 050
     Dates: start: 20080723, end: 20080724
  13. KYTRIL [Concomitant]
     Route: 050
     Dates: start: 20080806, end: 20080807
  14. AVASTIN [Suspect]
     Indication: COLON CANCER METASTATIC
     Dosage: NOTE: 229.5 MG
     Route: 041
     Dates: start: 20080723, end: 20080723
  15. OXALIPLATIN [Suspect]
     Route: 041
     Dates: start: 20080806, end: 20080806
  16. FLUOROURACIL [Suspect]
     Dosage: ROUTE: INTRAVENOUS DRIP
     Route: 042
     Dates: start: 20080903, end: 20080904
  17. AVASTIN [Suspect]
     Route: 041
     Dates: start: 20080903, end: 20080903
  18. OXALIPLATIN [Suspect]
     Route: 041
     Dates: start: 20080903, end: 20080903
  19. FLUOROURACIL [Suspect]
     Dosage: ROUTE: INTRAVENOUS BOLUS
     Route: 042
     Dates: start: 20080806, end: 20080807
  20. FLUOROURACIL [Suspect]
     Dosage: ROUTE: INTRAVENOUS DRIP.
     Route: 042
     Dates: start: 20080806, end: 20080807
  21. AVASTIN [Suspect]
     Dosage: NOTE: 229.5 MG
     Route: 041
     Dates: start: 20080806, end: 20080806

REACTIONS (4)
  - DISEASE PROGRESSION [None]
  - HAEMOPTYSIS [None]
  - ACUTE RESPIRATORY DISTRESS SYNDROME [None]
  - NEUTROPHIL COUNT DECREASED [None]
